FAERS Safety Report 8476145 (Version 2)
Quarter: 2014Q2

REPORT INFORMATION
  Report Type: Spontaneous
  Country: CA (occurrence: CA)
  Receive Date: 20120326
  Receipt Date: 20140604
  Transmission Date: 20141212
  Serious: Yes (Hospitalization, Other)
  Sender: FDA-Public Use
  Company Number: CA-JNJFOC-20120307915

PATIENT
  Age: 64 Year
  Sex: Male
  Weight: 68 kg

DRUGS (13)
  1. REMICADE [Suspect]
     Indication: CROHN^S DISEASE
     Dosage: 46TH INFUSION
     Route: 042
     Dates: start: 20140416
  2. REMICADE [Suspect]
     Indication: CROHN^S DISEASE
     Route: 042
     Dates: start: 20081202
  3. APO-DILTIAZ [Concomitant]
  4. RAMIPRIL [Concomitant]
  5. LIPITOR [Concomitant]
  6. BABY ASA [Concomitant]
  7. NITROGLYCERIN [Concomitant]
  8. CALCIUM [Concomitant]
  9. VITAMIN D [Concomitant]
  10. ALL OTHER THERAPEUTIC PRODUCTS [Concomitant]
  11. CENTRUM NOS [Concomitant]
     Route: 065
  12. NITRO [Concomitant]
     Route: 065
  13. ATORVASTATIN [Concomitant]
     Route: 065

REACTIONS (2)
  - Skin cancer [Recovered/Resolved]
  - Hip fracture [Unknown]
